FAERS Safety Report 18152988 (Version 1)
Quarter: 2020Q3

REPORT INFORMATION
  Report Type: Spontaneous
  Country: FR (occurrence: FR)
  Receive Date: 20200814
  Receipt Date: 20200814
  Transmission Date: 20201103
  Serious: Yes (Other)
  Sender: FDA-Public Use
  Company Number: FR-US-PROVELL PHARMACEUTICALS LLC-E2B_90079333

PATIENT
  Sex: Female

DRUGS (1)
  1. LEVOTHYROX [Suspect]
     Active Substance: LEVOTHYROXINE
     Indication: POST PROCEDURAL HYPOTHYROIDISM

REACTIONS (9)
  - Near death experience [Unknown]
  - Arthralgia [Unknown]
  - Myalgia [Unknown]
  - Memory impairment [Unknown]
  - Palpitations [Unknown]
  - Dyspnoea [Unknown]
  - Headache [Unknown]
  - Gastrointestinal disorder [Unknown]
  - Gait inability [Unknown]
